FAERS Safety Report 6288518-0 (Version None)
Quarter: 2009Q3

REPORT INFORMATION
  Report Type: 
  Country: None (occurrence: None)
  Receive Date: 20090729
  Receipt Date: 20090720
  Transmission Date: 20100115
  Serious: Yes (Hospitalization)
  Sender: FDA-Public Use
  Company Number: FR-AVENTIS-200914218EU

PATIENT
  Age: 60 Year
  Sex: Female

DRUGS (5)
  1. NATRILIX-SR [Suspect]
     Route: 048
     Dates: start: 20080501
  2. ASPIRIN [Concomitant]
  3. CALCIUM [Concomitant]
  4. FISH OIL [Concomitant]
  5. GLUCOSAMINE [Concomitant]

REACTIONS (1)
  - PARAESTHESIA [None]
